FAERS Safety Report 23428224 (Version 2)
Quarter: 2024Q1

REPORT INFORMATION
  Report Type: Spontaneous
  Country: US (occurrence: US)
  Receive Date: 20240122
  Receipt Date: 20240201
  Transmission Date: 20240410
  Serious: No
  Sender: FDA-Public Use
  Company Number: US-PFIZER INC-202400017875

PATIENT
  Age: 14 Year
  Sex: Male

DRUGS (1)
  1. LITFULO [Suspect]
     Active Substance: RITLECITINIB TOSYLATE
     Dosage: ONE PILL BY MOUTH DAILY
     Route: 048

REACTIONS (3)
  - Therapeutic product effect incomplete [Unknown]
  - Self esteem decreased [Unknown]
  - Product prescribing error [Unknown]
